FAERS Safety Report 13296862 (Version 1)
Quarter: 2017Q1

REPORT INFORMATION
  Report Type: Spontaneous
  Country: US (occurrence: US)
  Receive Date: 20170306
  Receipt Date: 20170306
  Transmission Date: 20170428
  Serious: No
  Sender: FDA-Public Use
  Company Number: US-ASTRAZENECA-2017SE21435

PATIENT
  Age: 714 Month
  Sex: Female
  Weight: 108.9 kg

DRUGS (4)
  1. MORPHINE [Concomitant]
     Active Substance: MORPHINE
     Indication: BACK PAIN
     Dosage: 15 MG, TWO TIMES A DAY, EXTENDED RELEASE
     Route: 048
  2. MOVANTIK [Suspect]
     Active Substance: NALOXEGOL OXALATE
     Indication: CONSTIPATION
     Route: 048
     Dates: start: 20161221
  3. MOVANTIK [Suspect]
     Active Substance: NALOXEGOL OXALATE
     Indication: CONSTIPATION
     Dosage: 25 MG, ONCE EVERY ONE TO THREE DAYS
     Route: 048
  4. MORPHINE [Concomitant]
     Active Substance: MORPHINE
     Indication: BACK PAIN
     Dosage: 15 MG, EVERY 4-6 HOURS AS REQUIRED, IMMEDIATE RELEASE
     Route: 048

REACTIONS (7)
  - Yawning [Recovering/Resolving]
  - Fatigue [Recovering/Resolving]
  - Intentional product misuse [Unknown]
  - Night sweats [Recovering/Resolving]
  - Diarrhoea [Recovering/Resolving]
  - Abdominal pain upper [Recovering/Resolving]
  - Flatulence [Recovering/Resolving]

NARRATIVE: CASE EVENT DATE: 201612
